FAERS Safety Report 5678681-4 (Version None)
Quarter: 2008Q1

REPORT INFORMATION
  Report Type: 
  Country: None (occurrence: None)
  Receive Date: 20080320
  Receipt Date: 20080310
  Transmission Date: 20080703
  Serious: Yes (Hospitalization)
  Sender: FDA-Public Use
  Company Number: 2008AL001495

PATIENT
  Age: 12 Year
  Sex: Male

DRUGS (1)
  1. IBUPROFEN [Suspect]
     Dosage: 150 MG; X1; PO
     Route: 048

REACTIONS (6)
  - ANAPHYLACTIC REACTION [None]
  - ANGIOEDEMA [None]
  - BLOOD IMMUNOGLOBULIN E INCREASED [None]
  - BRADYCARDIA [None]
  - DRUG HYPERSENSITIVITY [None]
  - RESPIRATORY RATE INCREASED [None]
